FAERS Safety Report 6804022-2 (Version None)
Quarter: 2010Q2

REPORT INFORMATION
  Report Type: 
  Country: None (occurrence: None)
  Receive Date: 20100628
  Receipt Date: 20070210
  Transmission Date: 20101027
  Serious: Yes (Other)
  Sender: FDA-Public Use
  Company Number: US-PFIZER INC-2006140359

PATIENT
  Sex: Female
  Weight: 81.2 kg

DRUGS (6)
  1. GEODON [Suspect]
     Indication: AFFECTIVE DISORDER
     Dates: start: 20051208, end: 20061128
  2. GEODON [Suspect]
     Indication: ATTENTION DEFICIT/HYPERACTIVITY DISORDER
  3. GEODON [Suspect]
     Indication: BORDERLINE PERSONALITY DISORDER
  4. LITHIUM [Concomitant]
     Dates: start: 20060503
  5. LAMICTAL [Concomitant]
     Dates: start: 20060803
  6. ADDERALL 10 [Concomitant]

REACTIONS (1)
  - TARDIVE DYSKINESIA [None]
